FAERS Safety Report 13500711 (Version 4)
Quarter: 2018Q3

REPORT INFORMATION
  Report Type: Report from Study
  Country: None (occurrence: NL)
  Receive Date: 20170501
  Receipt Date: 20180710
  Transmission Date: 20181010
  Serious: Yes (Life-Threatening, Hospitalization, Other)
  Sender: FDA-Public Use
  Company Number: NL-ABBVIE-17K-114-1958763-00

PATIENT
  Age: 67 Year
  Sex: Female
  Weight: 80 kg

DRUGS (7)
  1. VITAMIN B [Concomitant]
     Active Substance: VITAMIN B
     Indication: PRODUCT USED FOR UNKNOWN INDICATION
  2. BROXIL [Concomitant]
     Active Substance: PHENETHICILLIN POTASSIUM
     Indication: PRODUCT USED FOR UNKNOWN INDICATION
  3. CRESTOR [Concomitant]
     Active Substance: ROSUVASTATIN CALCIUM
     Indication: PRODUCT USED FOR UNKNOWN INDICATION
  4. PAROXETIN [Concomitant]
     Active Substance: PAROXETINE HYDROCHLORIDE
     Indication: PRODUCT USED FOR UNKNOWN INDICATION
  5. MACROGOL [Concomitant]
     Active Substance: POLYETHYLENE GLYCOLS
     Indication: PRODUCT USED FOR UNKNOWN INDICATION
  6. VITAMIN D [Concomitant]
     Active Substance: CHOLECALCIFEROL
     Indication: PRODUCT USED FOR UNKNOWN INDICATION
  7. DUODOPA [Suspect]
     Active Substance: CARBIDOPA\LEVODOPA
     Indication: PARKINSON^S DISEASE
     Dosage: MD: 5.0, CD: 5.6, ED: 2.0, CND: 3.6
     Route: 050
     Dates: start: 20160906

REACTIONS (15)
  - Respiratory rate increased [Not Recovered/Not Resolved]
  - Weight increased [Unknown]
  - Muscular weakness [Not Recovered/Not Resolved]
  - Emotional disorder [Unknown]
  - Nasal congestion [Not Recovered/Not Resolved]
  - Delirium [Not Recovered/Not Resolved]
  - Akinesia [Not Recovered/Not Resolved]
  - Internal haemorrhage [Recovering/Resolving]
  - Abnormal behaviour [Not Recovered/Not Resolved]
  - Stoma site discharge [Recovered/Resolved]
  - Feeling hot [Not Recovered/Not Resolved]
  - Nasal flaring [Not Recovered/Not Resolved]
  - Hypopnoea [Not Recovered/Not Resolved]
  - Sense of oppression [Not Recovered/Not Resolved]
  - Splenic rupture [Recovered/Resolved]

NARRATIVE: CASE EVENT DATE: 201704
